FAERS Safety Report 14431553 (Version 2)
Quarter: 2018Q1

REPORT INFORMATION
  Report Type: Spontaneous
  Country: RU (occurrence: RU)
  Receive Date: 20180124
  Receipt Date: 20180315
  Transmission Date: 20180509
  Serious: Yes (Hospitalization, Other)
  Sender: FDA-Public Use
  Company Number: RU-ASTRAZENECA-2018SE08034

PATIENT
  Age: 51 Year
  Sex: Female
  Weight: 96 kg

DRUGS (12)
  1. THIOGAMMA [Concomitant]
     Active Substance: THIOCTIC ACID
  2. CRESTOR [Concomitant]
     Active Substance: ROSUVASTATIN CALCIUM
  3. THROMBO ASS [Concomitant]
     Active Substance: ASPIRIN
  4. PHENAZEPAM [Concomitant]
     Active Substance: PHENAZEPAM
  5. KREON [Concomitant]
     Active Substance: PANCRELIPASE
  6. GLYCINE. [Concomitant]
     Active Substance: GLYCINE
  7. CONCOR [Concomitant]
     Active Substance: BISOPROLOL FUMARATE
  8. FORXIGA [Suspect]
     Active Substance: DAPAGLIFLOZIN
     Indication: TYPE 2 DIABETES MELLITUS
     Route: 048
     Dates: start: 201707, end: 201709
  9. FORXIGA [Suspect]
     Active Substance: DAPAGLIFLOZIN
     Indication: TYPE 2 DIABETES MELLITUS
     Route: 048
  10. GLUCOPHAGE [Concomitant]
     Active Substance: METFORMIN HYDROCHLORIDE
  11. FORXIGA [Suspect]
     Active Substance: DAPAGLIFLOZIN
     Indication: TYPE 2 DIABETES MELLITUS
     Route: 048
  12. URSOSAN [Concomitant]

REACTIONS (5)
  - Hypotension [Not Recovered/Not Resolved]
  - Syncope [Unknown]
  - Bradycardia [Not Recovered/Not Resolved]
  - Seizure [Unknown]
  - Intentional product misuse [Recovered/Resolved]

NARRATIVE: CASE EVENT DATE: 201709
